FAERS Safety Report 19382668 (Version 1)
Quarter: 2021Q2

REPORT INFORMATION
  Report Type: Spontaneous
  Country: JP (occurrence: JP)
  Receive Date: 20210607
  Receipt Date: 20210607
  Transmission Date: 20210717
  Serious: Yes (Other)
  Sender: FDA-Public Use
  Company Number: JP-ELI_LILLY_AND_COMPANY-JP202106001752

PATIENT
  Age: 46 Year
  Sex: Male

DRUGS (1)
  1. DULOXETINE HYDROCHLORIDE. [Suspect]
     Active Substance: DULOXETINE HYDROCHLORIDE
     Indication: DEPRESSION
     Dosage: 40 MG, DAILY
     Route: 048

REACTIONS (3)
  - Blood creatine phosphokinase increased [Unknown]
  - Blood potassium decreased [Unknown]
  - Neuroleptic malignant syndrome [Unknown]
